FAERS Safety Report 21433805 (Version 1)
Quarter: 2022Q4

REPORT INFORMATION
  Report Type: Spontaneous
  Country: US (occurrence: US)
  Receive Date: 20221010
  Receipt Date: 20221010
  Transmission Date: 20230113
  Serious: No
  Sender: FDA-Public Use
  Company Number: US-GSKCCFUS-Case-01519103_AE-86238

PATIENT
  Sex: Male

DRUGS (1)
  1. NUCALA [Suspect]
     Active Substance: MEPOLIZUMAB
     Indication: Nasal polyps
     Dosage: 100 MG, STARTED 11 MONTHS AGO
     Dates: start: 2021

REACTIONS (4)
  - Nasal polyps [Unknown]
  - Disease recurrence [Unknown]
  - Nasal obstruction [Unknown]
  - Drug ineffective [Unknown]
